FAERS Safety Report 5843294-8 (Version None)
Quarter: 2008Q3

REPORT INFORMATION
  Report Type: 
  Country: None (occurrence: None)
  Receive Date: 20080813
  Receipt Date: 20080618
  Transmission Date: 20090109
  Serious: No
  Sender: FDA-Public Use
  Company Number: US-BAYER-200812790BCC

PATIENT
  Age: 39 Year
  Sex: Female
  Weight: 54 kg

DRUGS (2)
  1. ALEVE-D COLD AND SINUS [Suspect]
     Indication: NASOPHARYNGITIS
     Dosage: TOTAL DAILY DOSE: 440 MG  UNIT DOSE: 220 MG
     Route: 048
     Dates: start: 20080609
  2. SENACOT [Concomitant]
     Route: 065

REACTIONS (4)
  - ABDOMINAL PAIN [None]
  - DYSPEPSIA [None]
  - NAUSEA [None]
  - VOMITING [None]
